FAERS Safety Report 14374818 (Version 2)
Quarter: 2018Q1

REPORT INFORMATION
  Report Type: Spontaneous
  Country: NL (occurrence: NL)
  Receive Date: 20180111
  Receipt Date: 20180112
  Transmission Date: 20180509
  Serious: Yes (Other)
  Sender: FDA-Public Use
  Company Number: NL-CIPLA LTD.-2017NL31118

PATIENT

DRUGS (3)
  1. FRISIUM 2XD1FRISIUM [Concomitant]
     Dosage: UNK
     Route: 065
     Dates: start: 201711
  2. LAMOTRIGINE. [Suspect]
     Active Substance: LAMOTRIGINE
     Indication: EPILEPSY
     Dosage: 25 MG, 12 HOURS, 2XD1
     Route: 065
     Dates: start: 201711
  3. LEVICETIRIZINE [Concomitant]
     Dosage: 5 MG, DAILY, 1XD1
     Route: 065
     Dates: start: 2014

REACTIONS (1)
  - Toxic skin eruption [Not Recovered/Not Resolved]

NARRATIVE: CASE EVENT DATE: 20171202
